FAERS Safety Report 7346213-0 (Version None)
Quarter: 2011Q1

REPORT INFORMATION
  Report Type: 
  Country: None (occurrence: None)
  Receive Date: 20110311
  Receipt Date: 20110301
  Transmission Date: 20110831
  Serious: Yes (Death, Hospitalization)
  Sender: FDA-Public Use
  Company Number: GB-CELGENEUS-167-50794-10113163

PATIENT
  Sex: Male

DRUGS (1)
  1. VIDAZA [Suspect]
     Route: 050
     Dates: start: 20100628, end: 20101105

REACTIONS (5)
  - PYREXIA [None]
  - SEPSIS [None]
  - PNEUMONIA [None]
  - COUGH [None]
  - MALAISE [None]
